FAERS Safety Report 8524868-2 (Version None)
Quarter: 2012Q3

REPORT INFORMATION
  Report Type: 
  Country: None (occurrence: None)
  Receive Date: 20120720
  Receipt Date: 20120712
  Transmission Date: 20120928
  Serious: Yes (Other)
  Sender: FDA-Public Use
  Company Number: GXBR2012US001665

PATIENT
  Age: 83 Year
  Sex: Female

DRUGS (1)
  1. LORATADINE [Suspect]
     Indication: HYPERSENSITIVITY
     Dosage: ONE TABLE (10MG) OR HALF A TABLET (5MG) DAILY

REACTIONS (2)
  - LOSS OF CONSCIOUSNESS [None]
  - EXPIRED DRUG ADMINISTERED [None]
